FAERS Safety Report 10156557 (Version 2)
Quarter: 2014Q2

REPORT INFORMATION
  Report Type: Not Available
  Country: US (occurrence: US)
  Receive Date: 20140507
  Receipt Date: 20140507
  Transmission Date: 20141212
  Serious: No
  Sender: FDA-Public Use
  Company Number: US-LUPIN PHARMACEUTICALS INC.-E2B_00001715

PATIENT
  Age: 60 Year
  Sex: Male
  Weight: 89.89 kg

DRUGS (5)
  1. IMIPRAMINE HYDROCHLORIDE TABLETS USP 50MG [Suspect]
     Indication: DEPRESSION
     Dates: start: 20140207
  2. PERCOCET [Concomitant]
     Indication: PAIN
  3. TIZANIDINE [Concomitant]
     Indication: MUSCLE SPASMS
  4. LISINOPRIL [Concomitant]
     Indication: HYPERTENSION
  5. ZOLOFT [Concomitant]
     Indication: DEPRESSION

REACTIONS (3)
  - Somnolence [Not Recovered/Not Resolved]
  - Asthenia [Not Recovered/Not Resolved]
  - Fatigue [Not Recovered/Not Resolved]
